FAERS Safety Report 8906784 (Version 1)
Quarter: 2012Q4

REPORT INFORMATION
  Report Type: 
  Country: US (occurrence: US)
  Receive Date: 20121113
  Receipt Date: 20121113
  Transmission Date: 20130627
  Serious: No
  Sender: FDA-Public Use
  Company Number: US-AMGEN-USASP2012010944

PATIENT
  Age: 79 Year
  Weight: 63.49 kg

DRUGS (8)
  1. ENBREL [Suspect]
     Indication: PRODUCT USED FOR UNKNOWN INDICATION
     Dosage: 50 mg, qwk
  2. AMLODIPINE [Concomitant]
     Dosage: 2.5 mg, UNK
  3. METHOTREXATE [Concomitant]
     Dosage: 2.5 mg, UNK
  4. LISINOPRIL [Concomitant]
     Dosage: 2.5 UNK, UNK
  5. LORAZEPAM [Concomitant]
  6. FISH OIL [Concomitant]
  7. VITAMIN D /00107901/ [Concomitant]
  8. CALCIUM [Concomitant]

REACTIONS (1)
  - Nasopharyngitis [Unknown]
